FAERS Safety Report 5066142-5 (Version None)
Quarter: 2006Q3

REPORT INFORMATION
  Report Type: 
  Country: None (occurrence: None)
  Receive Date: 20060725
  Receipt Date: 20060703
  Transmission Date: 20061208
  Serious: Yes (Other)
  Sender: FDA-Public Use
  Company Number: BE200604004413

PATIENT
  Age: 56 Year
  Sex: Female

DRUGS (2)
  1. CYMBALTA [Suspect]
     Indication: DEPRESSION
     Dosage: 60 MG, DAILY (1/D); ORAL
     Route: 048
     Dates: start: 20060410, end: 20060423
  2. STILNOCT (ZOLPIDEM TARTRATE) [Concomitant]

REACTIONS (8)
  - ALCOHOL USE [None]
  - AMNESIA [None]
  - FALL [None]
  - GAIT DISTURBANCE [None]
  - HEADACHE [None]
  - LOSS OF CONSCIOUSNESS [None]
  - SWELLING [None]
  - URINARY INCONTINENCE [None]
